FAERS Safety Report 9527037 (Version 3)
Quarter: 2013Q4

REPORT INFORMATION
  Report Type: Spontaneous
  Country: FR (occurrence: FR)
  Receive Date: 20130916
  Receipt Date: 20131107
  Transmission Date: 20140711
  Serious: Yes (Hospitalization)
  Sender: FDA-Public Use
  Company Number: FR-PFIZER INC-2013261126

PATIENT
  Age: 27 Year
  Sex: Female

DRUGS (5)
  1. DEXAMETHASONE SODIUM PHOSPHATE [Suspect]
     Indication: PREMEDICATION
     Dosage: 8 MG, UNK
     Route: 042
     Dates: start: 20130704, end: 20130704
  2. PACLITAXEL [Suspect]
     Indication: BREAST CANCER
     Dosage: 161 MG, UNK
     Route: 042
     Dates: start: 20130704, end: 20130704
  3. AZANTAC [Suspect]
     Indication: PREMEDICATION
     Dosage: 50 MG, UNK
     Route: 042
     Dates: start: 20130704, end: 20130704
  4. POLARAMINE [Suspect]
     Indication: PREMEDICATION
     Dosage: 5 MG, ^TWICE^
     Route: 042
     Dates: start: 20130704, end: 20130704
  5. AVASTIN [Concomitant]
     Dosage: UNK
     Dates: start: 20130704, end: 20130704

REACTIONS (4)
  - Erythema [Recovered/Resolved]
  - Chest discomfort [Recovered/Resolved]
  - Dyspnoea [Recovered/Resolved]
  - Hot flush [Recovered/Resolved]
